FAERS Safety Report 8026628 (Version 4)
Quarter: 2014Q3

REPORT INFORMATION
  Report Type: Spontaneous
  Country: US (occurrence: US)
  Receive Date: 20110708
  Receipt Date: 20140718
  Transmission Date: 20150326
  Serious: Yes (Hospitalization)
  Sender: FDA-Public Use
  Company Number: US-GLAXOSMITHKLINE-A0882797A

PATIENT
  Sex: Female
  Weight: 90 kg

DRUGS (2)
  1. AVANDIA [Suspect]
     Active Substance: ROSIGLITAZONE MALEATE
     Indication: DIABETES MELLITUS
     Dosage: 4MG PER DAY
     Route: 048
     Dates: start: 200206, end: 200605
  2. AVANDAMET [Suspect]
     Active Substance: METFORMIN HYDROCHLORIDE\ROSIGLITAZONE MALEATE
     Indication: DIABETES MELLITUS
     Route: 048

REACTIONS (7)
  - Bundle branch block right [Unknown]
  - Coronary artery disease [Unknown]
  - Cardiac disorder [Unknown]
  - Myocardial infarction [Recovering/Resolving]
  - Pulmonary embolism [Unknown]
  - Atrial fibrillation [Unknown]
  - Cardiac failure congestive [Unknown]
